FAERS Safety Report 25013841 (Version 1)
Quarter: 2025Q1

REPORT INFORMATION
  Report Type: Report from Study
  Country: US (occurrence: US)
  Receive Date: 20250226
  Receipt Date: 20250226
  Transmission Date: 20250409
  Serious: Yes (Hospitalization, Other)
  Sender: ABBVIE
  Company Number: US-ABBVIE-6143406

PATIENT
  Age: 77 Year
  Sex: Female
  Weight: 54.431 kg

DRUGS (2)
  1. SYNTHROID [Suspect]
     Active Substance: LEVOTHYROXINE SODIUM
     Indication: Hypothyroidism
     Dosage: 88 MILLIGRAM
     Route: 048
     Dates: start: 1995
  2. HUMALOG [Concomitant]
     Active Substance: INSULIN LISPRO
     Indication: Product used for unknown indication

REACTIONS (6)
  - Lung carcinoma cell type unspecified stage I [Recovered/Resolved]
  - Malaise [Recovered/Resolved]
  - Lymphoma [Recovered/Resolved]
  - Back pain [Not Recovered/Not Resolved]
  - Fungal cystitis [Recovering/Resolving]
  - Pulmonary resection [Recovered/Resolved]

NARRATIVE: CASE EVENT DATE: 20160101
